FAERS Safety Report 10436449 (Version 1)
Quarter: 2014Q2

REPORT INFORMATION
  Report Type: Spontaneous
  Country: US (occurrence: None)
  Receive Date: 20140604
  Receipt Date: 20140604
  Transmission Date: 20141212
  Serious: Yes (Hospitalization)
  Sender: FDA-Public Use
  Company Number: 20120806CINRY3225

PATIENT
  Age: 30 Year
  Sex: Female

DRUGS (2)
  1. CINRYZE (C1 ESTERASE INHIBITOR (HUMAN)) (500 UNIT, INJECTION FOR INFUSION) (C1 ESTERASE INHIBITOR (HUMAN)) [Suspect]
     Indication: HEREDITARY ANGIOEDEMA
     Dosage: 1000 UNIT, 3 IN 1 WK), INTRAVENOUS
     Route: 042
     Dates: start: 2010, end: 201209
  2. CINRYZE (C1 ESTERASE INHIBITOR (HUMAN)) (500 UNIT, INJECTION FOR INFUSION) (C1 ESTERASE INHIBITOR (HUMAN)) [Suspect]
     Indication: PROPHYLAXIS
     Dosage: 1000 UNIT, 3 IN 1 WK), INTRAVENOUS
     Route: 042
     Dates: start: 2010, end: 201209

REACTIONS (7)
  - Pregnancy [None]
  - Maternal exposure during pregnancy [None]
  - Hereditary angioedema [None]
  - Premature delivery [None]
  - Rash [None]
  - Feeling hot [None]
  - Premature rupture of membranes [None]
